FAERS Safety Report 16228931 (Version 1)
Quarter: 2019Q2

REPORT INFORMATION
  Report Type: Spontaneous
  Country: US (occurrence: US)
  Receive Date: 20190319
  Receipt Date: 20190319
  Transmission Date: 20190711
  Serious: Yes (Disabling, Other)
  Sender: FDA-Public Use
  Company Number: None

PATIENT
  Age: 70 Year
  Sex: Female

DRUGS (1)
  1. LISINOPRIL. [Suspect]
     Active Substance: LISINOPRIL
     Indication: HYPERTENSION
     Dosage: ?          QUANTITY:15MG 1 1/2 PILL;?
     Route: 048

REACTIONS (7)
  - Cough [None]
  - Decreased appetite [None]
  - Eating disorder [None]
  - Nausea [None]
  - Fatigue [None]
  - Sleep disorder [None]
  - Retching [None]

NARRATIVE: CASE EVENT DATE: 20170110
